FAERS Safety Report 25918303 (Version 1)
Quarter: 2025Q4

REPORT INFORMATION
  Report Type: Spontaneous
  Country: US (occurrence: None)
  Receive Date: 20251010
  Receipt Date: 20251010
  Transmission Date: 20260117
  Serious: Yes (Hospitalization)
  Sender: FDA-CTU
  Company Number: None

PATIENT
  Age: 10 Year
  Sex: Female
  Weight: 33.3 kg

DRUGS (1)
  1. CALASPARGASE PEGOL-MKNL [Suspect]
     Active Substance: CALASPARGASE PEGOL-MKNL
     Indication: Acute lymphocytic leukaemia
     Dosage: OTHER FREQUENCY : ONCE;?
     Route: 042
     Dates: start: 20250918, end: 20250918

REACTIONS (3)
  - Febrile neutropenia [None]
  - Pancreatitis acute [None]
  - Venoocclusive liver disease [None]

NARRATIVE: CASE EVENT DATE: 20251001
